FAERS Safety Report 8791907 (Version 1)
Quarter: 2012Q4

REPORT INFORMATION
  Report Type: 
  Country: GB (occurrence: GB)
  Receive Date: 20120918
  Receipt Date: 20120918
  Transmission Date: 20130627
  Serious: Yes (Hospitalization, Other)
  Sender: FDA-Public Use
  Company Number: GB-ASTRAZENECA-2012SE71107

PATIENT
  Age: 83 Year
  Sex: Female

DRUGS (15)
  1. OMEPRAZOLE [Suspect]
     Route: 048
     Dates: end: 20120821
  2. PHENYTOIN [Suspect]
     Indication: GRAND MAL CONVULSION
     Route: 041
     Dates: start: 20120818, end: 20120818
  3. AMOXICILLIN\CLAVULANATE POTASSIUM [Suspect]
     Indication: URINARY TRACT INFECTION
     Route: 040
     Dates: start: 20120818, end: 20120819
  4. AMOXICILLIN\CLAVULANATE POTASSIUM [Suspect]
     Indication: URINARY TRACT INFECTION
     Route: 048
     Dates: start: 20120820, end: 20120821
  5. EPILIM [Suspect]
     Indication: GRAND MAL CONVULSION
     Route: 048
     Dates: start: 20120819, end: 20120821
  6. GENTICIN [Suspect]
     Indication: URINARY TRACT INFECTION
     Route: 041
     Dates: start: 20120818, end: 20120818
  7. BUTRANS [Concomitant]
     Route: 062
     Dates: start: 20120819
  8. BUTRANS [Concomitant]
     Route: 062
     Dates: end: 20120819
  9. CALCEOS [Concomitant]
  10. EBIXA [Concomitant]
     Indication: VASCULAR DEMENTIA
     Route: 048
  11. MOVICOL [Concomitant]
     Dates: end: 20120818
  12. PARACETAMOL [Concomitant]
     Route: 048
  13. PROTELOS [Concomitant]
     Route: 048
     Dates: end: 20120818
  14. SENNA [Concomitant]
     Dates: end: 20120818
  15. TRIMETHOPRIM [Concomitant]
     Indication: URINARY TRACT INFECTION
     Route: 048
     Dates: end: 20120823

REACTIONS (4)
  - Blood creatine phosphokinase increased [Recovering/Resolving]
  - Syncope [Unknown]
  - Grand mal convulsion [Unknown]
  - Urinary tract infection [Unknown]
